FAERS Safety Report 8853711 (Version 1)
Quarter: 2012Q4

REPORT INFORMATION
  Report Type: 
  Country: BR (occurrence: BR)
  Receive Date: 20121022
  Receipt Date: 20121022
  Transmission Date: 20130627
  Serious: Yes (Other)
  Sender: FDA-Public Use
  Company Number: BR-PFIZER INC-2012260829

PATIENT
  Age: 48 Year
  Sex: Female
  Weight: 109 kg

DRUGS (1)
  1. FRONTAL [Suspect]
     Indication: DEPRESSION
     Dosage: 1 mg, 2x/day (one tablet, twice a day)
     Route: 048
     Dates: start: 1992

REACTIONS (3)
  - Breast cancer [Unknown]
  - Diabetes mellitus [Unknown]
  - Hypertension [Unknown]
